FAERS Safety Report 25388258 (Version 5)
Quarter: 2025Q4

REPORT INFORMATION
  Report Type: Report from Study
  Country: US (occurrence: US)
  Receive Date: 20250603
  Receipt Date: 20251110
  Transmission Date: 20260118
  Serious: Yes (Other)
  Sender: CSL BEHRING
  Company Number: US-BEH-2025208216

PATIENT
  Age: 53 Year
  Sex: Male
  Weight: 96.15 kg

DRUGS (1)
  1. ZEMAIRA [Suspect]
     Active Substance: .ALPHA.1-PROTEINASE INHIBITOR HUMAN
     Indication: Alpha-1 antitrypsin deficiency
     Dosage: UNK, QW
     Route: 042

REACTIONS (18)
  - Pancreatitis [Recovering/Resolving]
  - Dehydration [Recovering/Resolving]
  - Diarrhoea [Recovering/Resolving]
  - Vomiting [Recovering/Resolving]
  - Ketoacidosis [Recovering/Resolving]
  - Vomiting [Recovering/Resolving]
  - Dehydration [Recovering/Resolving]
  - Diarrhoea [Recovering/Resolving]
  - Gastroenteritis viral [Recovering/Resolving]
  - Diarrhoea [Recovering/Resolving]
  - Vomiting [Recovering/Resolving]
  - Therapy interrupted [Unknown]
  - Gastrointestinal disorder [Not Recovered/Not Resolved]
  - Dizziness [Not Recovered/Not Resolved]
  - Gait disturbance [Unknown]
  - Vomiting [Unknown]
  - Vomiting [Unknown]
  - Hypertension [Unknown]

NARRATIVE: CASE EVENT DATE: 20250501
